FAERS Safety Report 18436717 (Version 2)
Quarter: 2020Q4

REPORT INFORMATION
  Report Type: Report from Study
  Country: GB (occurrence: GB)
  Receive Date: 20201028
  Receipt Date: 20201201
  Transmission Date: 20210114
  Serious: Yes (Hospitalization)
  Sender: FDA-Public Use
  Company Number: GB-PFIZER INC-2020411903

PATIENT
  Age: 49 Year
  Sex: Female

DRUGS (2)
  1. HYRIMOZ [Suspect]
     Active Substance: ADALIMUMAB-ADAZ
     Indication: PSORIATIC ARTHROPATHY
     Dosage: 40 MG, (40/ 0.8 MG/ ML (EOW))
     Route: 065
     Dates: start: 20190723
  2. METHOTREXATE SODIUM. [Suspect]
     Active Substance: METHOTREXATE SODIUM
     Dosage: UNK
     Route: 065

REACTIONS (9)
  - Vomiting projectile [Unknown]
  - Urinary tract infection [Unknown]
  - Muscle spasms [Unknown]
  - Blood iron increased [Unknown]
  - Injury [Unknown]
  - Hyperkeratosis [Unknown]
  - Arthralgia [Unknown]
  - Weight decreased [Unknown]
  - Arthritis [Unknown]
